FAERS Safety Report 22127764 (Version 1)
Quarter: 2023Q1

REPORT INFORMATION
  Report Type: Report from Study
  Country: US (occurrence: US)
  Receive Date: 20230323
  Receipt Date: 20230323
  Transmission Date: 20230417
  Serious: Yes (Other)
  Sender: FDA-Public Use
  Company Number: US-ABBVIE-4699356

PATIENT
  Sex: Female

DRUGS (1)
  1. SKYRIZI [Suspect]
     Active Substance: RISANKIZUMAB-RZAA
     Indication: Psoriasis
     Dosage: FIRST AND LAST ADMIN DATE: 18 JAN 2023, FREQUENCY: WEEK 0, FORM STRENGTH: 150 MILLIGRAM
     Route: 058

REACTIONS (2)
  - Breast prosthesis removal [Unknown]
  - Skin disorder [Unknown]

NARRATIVE: CASE EVENT DATE: 20230101
